FAERS Safety Report 6943637-8 (Version None)
Quarter: 2010Q3

REPORT INFORMATION
  Report Type: 
  Country: None (occurrence: None)
  Receive Date: 20100826
  Receipt Date: 20100813
  Transmission Date: 20110219
  Serious: Yes (Hospitalization, Other)
  Sender: FDA-Public Use
  Company Number: PHHY2010TH45452

PATIENT
  Age: 69 Year
  Sex: Female

DRUGS (2)
  1. ZOLEDRONIC [Suspect]
     Dosage: 5 MG
     Route: 042
     Dates: start: 20090101
  2. ZOLEDRONIC [Suspect]
     Dosage: UNK
     Dates: start: 20100101

REACTIONS (9)
  - ABASIA [None]
  - APHAGIA [None]
  - APHASIA [None]
  - BEDRIDDEN [None]
  - ENTERAL NUTRITION [None]
  - HYPOKINESIA [None]
  - ISCHAEMIC STROKE [None]
  - LOSS OF CONSCIOUSNESS [None]
  - UNRESPONSIVE TO STIMULI [None]
